FAERS Safety Report 19225081 (Version 1)
Quarter: 2021Q2

REPORT INFORMATION
  Report Type: Spontaneous
  Country: US (occurrence: US)
  Receive Date: 20210505
  Receipt Date: 20210505
  Transmission Date: 20210717
  Serious: No
  Sender: FDA-Public Use
  Company Number: US-ROCHE-2706007

PATIENT
  Sex: Male

DRUGS (9)
  1. PANTOPRAZOLE SODIUM. [Concomitant]
     Active Substance: PANTOPRAZOLE SODIUM
  2. POTASSIUM CHLORIDE. [Concomitant]
     Active Substance: POTASSIUM CHLORIDE
  3. BISOPROLOL FUMARATE. [Concomitant]
     Active Substance: BISOPROLOL FUMARATE
  4. IRBESARTAN. [Concomitant]
     Active Substance: IRBESARTAN
  5. FUROSEMIDE. [Concomitant]
     Active Substance: FUROSEMIDE
  6. MAGNESIUM [Concomitant]
     Active Substance: MAGNESIUM
  7. LEVOTHYROXINE SODIUM. [Concomitant]
     Active Substance: LEVOTHYROXINE SODIUM
  8. ESBRIET [Suspect]
     Active Substance: PIRFENIDONE
     Indication: ANAEMIA
     Route: 048
  9. ASPIRIN. [Concomitant]
     Active Substance: ASPIRIN

REACTIONS (5)
  - Product use in unapproved indication [Unknown]
  - Nausea [Recovered/Resolved]
  - Abdominal discomfort [Recovered/Resolved]
  - Off label use [Unknown]
  - Dizziness [Recovered/Resolved]
